FAERS Safety Report 8347429-7 (Version None)
Quarter: 2012Q2

REPORT INFORMATION
  Report Type: 
  Country: None (occurrence: None)
  Receive Date: 20120509
  Receipt Date: 20120424
  Transmission Date: 20120825
  Serious: Yes (Other)
  Sender: FDA-Public Use
  Company Number: US-ROCHE-1035112

PATIENT
  Sex: Male
  Weight: 83.99 kg

DRUGS (1)
  1. ACCUTANE [Suspect]
     Indication: ACNE CYSTIC
     Route: 048
     Dates: start: 19910820, end: 19920205

REACTIONS (6)
  - CROHN'S DISEASE [None]
  - ANXIETY [None]
  - PROCTITIS [None]
  - INFLAMMATORY BOWEL DISEASE [None]
  - HEPATIC ENZYME INCREASED [None]
  - DEPRESSION [None]
